FAERS Safety Report 21595605 (Version 1)
Quarter: 2022Q4

REPORT INFORMATION
  Report Type: Spontaneous
  Country: US (occurrence: None)
  Receive Date: 20221115
  Receipt Date: 20221115
  Transmission Date: 20230113
  Serious: No
  Sender: FDA-Public Use
  Company Number: 2022A349211

PATIENT
  Age: 987 Month
  Sex: Female

DRUGS (1)
  1. SYMBICORT [Suspect]
     Active Substance: BUDESONIDE\FORMOTEROL FUMARATE DIHYDRATE
     Indication: Bronchitis
     Dosage: 160/4.5 2 PUFFS, TWO TIMES A DAY
     Route: 055

REACTIONS (2)
  - Bronchospasm [Unknown]
  - Off label use [Unknown]

NARRATIVE: CASE EVENT DATE: 20220901
